FAERS Safety Report 12994223 (Version 2)
Quarter: 2016Q4

REPORT INFORMATION
  Report Type: Spontaneous
  Country: IT (occurrence: IT)
  Receive Date: 20161202
  Receipt Date: 20161229
  Transmission Date: 20170207
  Serious: Yes (Hospitalization)
  Sender: FDA-Public Use
  Company Number: IT-SA-2016SA216002

PATIENT
  Age: 80 Year
  Sex: Female

DRUGS (6)
  1. CARDIOASPIRIN [Suspect]
     Active Substance: ASPIRIN
     Dosage: DOSE:1 UNIT(S)
     Route: 048
     Dates: start: 20120101, end: 20130311
  2. SIMVASTATIN. [Concomitant]
     Active Substance: SIMVASTATIN
     Route: 048
  3. PEPTAZOL [Concomitant]
     Active Substance: PANTOPRAZOLE SODIUM
     Route: 048
  4. PLAVIX [Suspect]
     Active Substance: CLOPIDOGREL BISULFATE
     Dosage: DOSE:1 UNIT(S)
     Route: 048
     Dates: start: 20120524, end: 20130311
  5. BISOPROLOL HEMIFUMARATE [Concomitant]
     Active Substance: BISOPROLOL FUMARATE
     Route: 048
  6. LOSARTAN POTASSIUM/HYDROCHLOROTHIAZIDE [Concomitant]
     Route: 048

REACTIONS (2)
  - Cerebral haemorrhage [Unknown]
  - Loss of consciousness [Unknown]

NARRATIVE: CASE EVENT DATE: 20130311
